FAERS Safety Report 4881376-8 (Version None)
Quarter: 2006Q1

REPORT INFORMATION
  Report Type: 
  Country: None (occurrence: None)
  Receive Date: 20060111
  Receipt Date: 20060111
  Transmission Date: 20060701
  Serious: Yes (Other)
  Sender: FDA-Public Use
  Company Number: None

PATIENT
  Sex: Female
  Weight: 25.3 kg

DRUGS (5)
  1. ZYPREXA ZYDIS [Suspect]
     Indication: MOOD ALTERED
     Dosage: PRN RAGES USED INFREQUENTLY
     Dates: start: 20041118, end: 20041231
  2. ABILIFY [Suspect]
     Indication: ANGER
     Dosage: PO Q AM
     Route: 048
     Dates: start: 20041130, end: 20051113
  3. GUANFACINE HCL [Concomitant]
  4. FLUOXETINE [Concomitant]
  5. MELATONIN [Concomitant]

REACTIONS (1)
  - LABORATORY TEST ABNORMAL [None]
